FAERS Safety Report 25380724 (Version 1)
Quarter: 2025Q2

REPORT INFORMATION
  Report Type: Spontaneous
  Country: CN (occurrence: CN)
  Receive Date: 20250530
  Receipt Date: 20250530
  Transmission Date: 20250716
  Serious: Yes (Other)
  Sender: BAYER HEALTHCARE PHARMACEUTICALS INC.
  Company Number: CN-BAYER-2025A068387

PATIENT
  Age: 13 Year
  Sex: Female
  Weight: 46 kg

DRUGS (3)
  1. SORAFENIB [Suspect]
     Active Substance: SORAFENIB
     Indication: Desmoid tumour
     Dates: start: 2021, end: 202410
  2. SORAFENIB [Suspect]
     Active Substance: SORAFENIB
     Indication: Desmoid tumour
     Dates: start: 202501, end: 2025
  3. SORAFENIB [Suspect]
     Active Substance: SORAFENIB
     Indication: Desmoid tumour
     Dosage: 400 MG, QD
     Dates: start: 2025

REACTIONS (3)
  - Ureteric fistula [None]
  - Product prescribing issue [None]
  - Drug effective for unapproved indication [None]

NARRATIVE: CASE EVENT DATE: 20210101
